FAERS Safety Report 10960326 (Version 3)
Quarter: 2015Q4

REPORT INFORMATION
  Report Type: Report from Study
  Country: CO (occurrence: CO)
  Receive Date: 20150327
  Receipt Date: 20151028
  Transmission Date: 20160304
  Serious: Yes (Hospitalization, Disabling, Other)
  Sender: FDA-Public Use
  Company Number: CO-JNJFOC-20140119488

PATIENT
  Age: 80 Year
  Sex: Female

DRUGS (14)
  1. XARELTO [Suspect]
     Active Substance: RIVAROXABAN
     Indication: DEEP VEIN THROMBOSIS
     Route: 048
     Dates: start: 201207
  2. NATRILIX [Concomitant]
     Active Substance: INDAPAMIDE
     Route: 065
  3. XARELTO [Suspect]
     Active Substance: RIVAROXABAN
     Indication: DEEP VEIN THROMBOSIS
     Route: 048
     Dates: start: 20141214
  4. BISACODYL. [Concomitant]
     Active Substance: BISACODYL
     Route: 065
  5. TRAUSAN [Concomitant]
     Route: 065
  6. ATORVASTATIN [Concomitant]
     Active Substance: ATORVASTATIN
     Route: 065
  7. XARELTO [Suspect]
     Active Substance: RIVAROXABAN
     Indication: EMBOLISM VENOUS
     Route: 048
     Dates: start: 20141214
  8. CILOSTAZOL. [Concomitant]
     Active Substance: CILOSTAZOL
     Route: 065
  9. ANEMIDOX FERRUM [Concomitant]
     Route: 065
  10. LYRICA [Concomitant]
     Active Substance: PREGABALIN
     Route: 065
  11. METFORMIN [Concomitant]
     Active Substance: METFORMIN HYDROCHLORIDE
     Route: 065
  12. AMLODIPINE [Concomitant]
     Active Substance: AMLODIPINE BESYLATE
     Route: 065
  13. XARELTO [Suspect]
     Active Substance: RIVAROXABAN
     Indication: EMBOLISM VENOUS
     Route: 048
     Dates: start: 201207
  14. ASPIRINETAS [Concomitant]
     Active Substance: ASPIRIN
     Route: 065

REACTIONS (17)
  - Mobility decreased [Unknown]
  - Pneumonia [Recovered/Resolved]
  - Renal mass [Not Recovered/Not Resolved]
  - Erythema [Not Recovered/Not Resolved]
  - Urinary tract infection [Not Recovered/Not Resolved]
  - Haematuria [Recovered/Resolved]
  - Haemoglobin decreased [Not Recovered/Not Resolved]
  - Musculoskeletal pain [Unknown]
  - Phantom pain [Not Recovered/Not Resolved]
  - Amnesia [Not Recovered/Not Resolved]
  - Amnesia [Not Recovered/Not Resolved]
  - Disorientation [Not Recovered/Not Resolved]
  - Cerebral ischaemia [Recovered/Resolved with Sequelae]
  - Blood viscosity abnormal [Not Recovered/Not Resolved]
  - Petechiae [Unknown]
  - Poor peripheral circulation [Unknown]
  - Haematuria [Not Recovered/Not Resolved]

NARRATIVE: CASE EVENT DATE: 20141111
